FAERS Safety Report 6302387-1 (Version None)
Quarter: 2009Q3

REPORT INFORMATION
  Report Type: 
  Country: None (occurrence: None)
  Receive Date: 20090810
  Receipt Date: 20090806
  Transmission Date: 20100115
  Serious: Yes (Hospitalization)
  Sender: FDA-Public Use
  Company Number: PHEH2009US05411

PATIENT
  Sex: Male

DRUGS (2)
  1. DIOVAN [Suspect]
     Dosage: UNK, UNK
  2. HYDROCHLOROTHIAZIDE [Suspect]
     Dosage: UNK, UNK

REACTIONS (1)
  - SYNCOPE [None]
